FAERS Safety Report 17902953 (Version 28)
Quarter: 2024Q3

REPORT INFORMATION
  Report Type: Report from Study
  Country: DE (occurrence: DE)
  Receive Date: 20200617
  Receipt Date: 20240807
  Transmission Date: 20241016
  Serious: Yes (Hospitalization, Other)
  Sender: ROCHE
  Company Number: DE-ROCHE-2138885

PATIENT
  Age: 50 Year
  Sex: Female

DRUGS (21)
  1. OCREVUS [Suspect]
     Active Substance: OCRELIZUMAB
     Indication: Progressive relapsing multiple sclerosis
     Dosage: ON 06/JUN/2018, SHE RECEIVED HER SECOND INFUSION.
     Route: 042
     Dates: start: 20180523
  2. OCREVUS [Suspect]
     Active Substance: OCRELIZUMAB
     Indication: Secondary progressive multiple sclerosis
     Dosage: INFUSION NO. 3
     Route: 042
     Dates: start: 20181204
  3. OCREVUS [Suspect]
     Active Substance: OCRELIZUMAB
     Dosage: INFUSION NO. 4
     Route: 042
     Dates: start: 20190603
  4. OCREVUS [Suspect]
     Active Substance: OCRELIZUMAB
     Dosage: INFUSION NO. 5
     Route: 042
     Dates: start: 20191203
  5. OCREVUS [Suspect]
     Active Substance: OCRELIZUMAB
     Route: 042
     Dates: start: 20200729
  6. OCREVUS [Suspect]
     Active Substance: OCRELIZUMAB
     Route: 042
     Dates: start: 20210331
  7. OCREVUS [Suspect]
     Active Substance: OCRELIZUMAB
     Route: 042
     Dates: start: 20220603
  8. OCREVUS [Suspect]
     Active Substance: OCRELIZUMAB
     Route: 042
  9. OCREVUS [Suspect]
     Active Substance: OCRELIZUMAB
     Route: 042
  10. COMIRNATY (TOZINAMERAN) [Suspect]
     Active Substance: TOZINAMERAN
     Indication: COVID-19 prophylaxis
     Dosage: 4TH VACCINATION ON 25/MAR/2022
     Route: 065
  11. MODERNA COVID-19 VACCINE [Suspect]
     Active Substance: ELASOMERAN
     Indication: COVID-19 prophylaxis
     Route: 065
  12. DALFAMPRIDINE [Concomitant]
     Active Substance: DALFAMPRIDINE
     Dosage: 10 (1-0-1)
  13. CLOMIPRAMINE [Concomitant]
     Active Substance: CLOMIPRAMINE
  14. CITALOPRAM [Concomitant]
     Active Substance: CITALOPRAM\CITALOPRAM HYDROBROMIDE
     Dosage: 1.5 - 0-0
  15. CITALOPRAM [Concomitant]
     Active Substance: CITALOPRAM\CITALOPRAM HYDROBROMIDE
     Dosage: 30 MG: 1.5-0-0
  16. CITALOPRAM [Concomitant]
     Active Substance: CITALOPRAM\CITALOPRAM HYDROBROMIDE
  17. CHOLECALCIFEROL [Concomitant]
     Active Substance: CHOLECALCIFEROL
  18. NABIXIMOLS [Concomitant]
     Active Substance: NABIXIMOLS
     Dosage: FREQUENCY TEXT:1-0-0
  19. MAGNESIUM [Concomitant]
     Active Substance: MAGNESIUM
  20. PROMETHAZINE [Concomitant]
     Active Substance: PROMETHAZINE HYDROCHLORIDE
     Dosage: FREQUENCY TEXT:0-1-0
  21. IBUPROFEN [Concomitant]
     Active Substance: IBUPROFEN
     Dosage: FREQUENCY TEXT:AS NEEDED

REACTIONS (41)
  - Fatigue [Recovered/Resolved]
  - Erythema [Recovered/Resolved]
  - Pruritus [Recovered/Resolved]
  - Off label use [Unknown]
  - Fatigue [Recovered/Resolved]
  - Gait disturbance [Not Recovered/Not Resolved]
  - Muscular weakness [Unknown]
  - Dizziness [Recovered/Resolved]
  - Ataxia [Recovering/Resolving]
  - Ocular discomfort [Not Recovered/Not Resolved]
  - Fatigue [Recovered/Resolved]
  - Fall [Unknown]
  - Haematoma [Recovered/Resolved]
  - Myalgia [Recovered/Resolved]
  - Body temperature increased [Recovered/Resolved]
  - Feeling hot [Recovered/Resolved]
  - Hyperhidrosis [Recovered/Resolved]
  - Heart rate increased [Recovered/Resolved]
  - Insomnia [Recovered/Resolved]
  - Aphasia [Not Recovered/Not Resolved]
  - Bacterial infection [Recovered/Resolved]
  - Fluid retention [Recovered/Resolved]
  - Apathy [Recovered/Resolved]
  - Dermatitis contact [Recovering/Resolving]
  - Tinea pedis [Recovered/Resolved]
  - Hemiparesis [Recovered/Resolved]
  - Hypoaesthesia [Recovered/Resolved]
  - Neuralgia [Recovered/Resolved]
  - Haemorrhoids [Recovered/Resolved]
  - Burning sensation [Recovered/Resolved]
  - Pain in extremity [Recovered/Resolved]
  - Gait disturbance [Recovering/Resolving]
  - Headache [Unknown]
  - Joint swelling [Unknown]
  - Cystitis noninfective [Recovered/Resolved]
  - Neck pain [Recovered/Resolved]
  - COVID-19 [Recovered/Resolved]
  - Muscular weakness [Not Recovered/Not Resolved]
  - Depression [Not Recovered/Not Resolved]
  - Tachycardia [Recovered/Resolved]
  - Cough [Recovered/Resolved]

NARRATIVE: CASE EVENT DATE: 20180523
